FAERS Safety Report 9555829 (Version 4)
Quarter: 2014Q1

REPORT INFORMATION
  Report Type: Spontaneous
  Country: CY (occurrence: CY)
  Receive Date: 20130926
  Receipt Date: 20140304
  Transmission Date: 20141002
  Serious: Yes (Other)
  Sender: FDA-Public Use
  Company Number: CY-ABBVIE-13X-041-1073762-00

PATIENT
  Age: 59 Year
  Sex: Female

DRUGS (3)
  1. TEVETEN 600/12.5MG [Suspect]
     Indication: HYPERTENSION
     Dosage: DOSAGE FORM: 600 MG/12.5 MG
     Route: 048
     Dates: start: 201210, end: 20130504
  2. TEVETEN 600/12.5MG [Suspect]
     Route: 048
     Dates: start: 201305
  3. THYROXINE [Concomitant]
     Indication: HYPOTHYROIDISM

REACTIONS (2)
  - Oedema peripheral [Recovered/Resolved]
  - Joint swelling [Recovered/Resolved]
